FAERS Safety Report 9571245 (Version 1)
Quarter: 2013Q3

REPORT INFORMATION
  Report Type: Spontaneous
  Country: US (occurrence: None)
  Receive Date: 20130927
  Receipt Date: 20130927
  Transmission Date: 20140515
  Serious: Yes (Disabling)
  Sender: FDA-Public Use
  Company Number: None

PATIENT
  Age: 53 Year
  Sex: Male
  Weight: 86.18 kg

DRUGS (1)
  1. CIPROFLOXACIN [Suspect]
     Indication: GASTROINTESTINAL INFECTION
     Dosage: 1 PILL, TWICE DAILY, TAKEN BY MOUTH
     Route: 048
     Dates: start: 20130802, end: 20131011

REACTIONS (1)
  - Tendon disorder [None]
